FAERS Safety Report 10265755 (Version 1)
Quarter: 2014Q2

REPORT INFORMATION
  Report Type: Spontaneous
  Country: JP (occurrence: JP)
  Receive Date: 20140627
  Receipt Date: 20140627
  Transmission Date: 20141212
  Serious: Yes (Other)
  Sender: FDA-Public Use
  Company Number: JP-BRISTOL-MYERS SQUIBB COMPANY-21075270

PATIENT
  Age: 4 Decade
  Sex: Male

DRUGS (2)
  1. METGLUCO [Suspect]
     Indication: TYPE 2 DIABETES MELLITUS
     Dosage: INCREASED TO 1000MG/DAY AND 1500MG/DAY.
     Route: 048
  2. CRESTOR [Suspect]
     Route: 048

REACTIONS (1)
  - Renal impairment [Unknown]
